FAERS Safety Report 4954485-2 (Version None)
Quarter: 2006Q1

REPORT INFORMATION
  Report Type: 
  Country: None (occurrence: None)
  Receive Date: 20060322
  Receipt Date: 20060310
  Transmission Date: 20060701
  Serious: Yes (Hospitalization, Other)
  Sender: FDA-Public Use
  Company Number: 2006008546

PATIENT
  Age: 73 Year
  Sex: Male
  Weight: 89 kg

DRUGS (6)
  1. TAHOR (ATORVASTATIN) [Suspect]
     Indication: HYPERCHOLESTEROLAEMIA
     Dosage: 40 MG (40 MG, 1 IN 1 D ), ORAL
     Route: 048
     Dates: start: 20051006
  2. CASODEX [Suspect]
     Indication: PROSTATE CANCER
     Dosage: 50 MG (1 IN 1 D), ORAL
     Route: 048
     Dates: start: 20051029
  3. FUROSEMIDE [Concomitant]
  4. RAMIPRIL [Concomitant]
  5. ZOLPIDEM TARTRATE [Concomitant]
  6. ALPRAZOLAM [Concomitant]

REACTIONS (6)
  - CHOLELITHIASIS [None]
  - CYTOLYTIC HEPATITIS [None]
  - DRUG RASH WITH EOSINOPHILIA AND SYSTEMIC SYMPTOMS [None]
  - HEPATITIS CHOLESTATIC [None]
  - HYPERSENSITIVITY [None]
  - TOXIC SKIN ERUPTION [None]
